FAERS Safety Report 16062518 (Version 3)
Quarter: 2019Q2

REPORT INFORMATION
  Report Type: Spontaneous
  Country: US (occurrence: US)
  Receive Date: 20190312
  Receipt Date: 20190417
  Transmission Date: 20190711
  Serious: Yes (Hospitalization)
  Sender: FDA-Public Use
  Company Number: US-SA-2019SA064794

PATIENT
  Age: 34 Year
  Sex: Male

DRUGS (1)
  1. MOZOBIL [Suspect]
     Active Substance: PLERIXAFOR
     Indication: NEOPLASM MALIGNANT
     Dosage: UNK UNK, QOW
     Route: 058

REACTIONS (2)
  - Hyponatraemia [Recovered/Resolved]
  - Diarrhoea [Recovered/Resolved]
